FAERS Safety Report 11589617 (Version 1)
Quarter: 2015Q4

REPORT INFORMATION
  Report Type: Spontaneous
  Country: US (occurrence: US)
  Receive Date: 20151002
  Receipt Date: 20151002
  Transmission Date: 20160304
  Serious: No
  Sender: FDA-Public Use
  Company Number: US-JNJFOC-20150902763

PATIENT
  Sex: Female
  Weight: 108.86 kg

DRUGS (5)
  1. METFORMIN [Concomitant]
     Active Substance: METFORMIN HYDROCHLORIDE
     Indication: INSULIN RESISTANCE
     Route: 065
     Dates: start: 2002
  2. PROGESTERONE. [Concomitant]
     Active Substance: PROGESTERONE
     Indication: SEIZURE
     Route: 065
     Dates: start: 2002
  3. TOPAMAX [Suspect]
     Active Substance: TOPIRAMATE
     Indication: PARTIAL SEIZURES
     Route: 048
     Dates: start: 2011
  4. ARMOUR THYROID [Concomitant]
     Active Substance: THYROID, PORCINE\THYROID, UNSPECIFIED
     Indication: THYROID DISORDER
     Route: 065
     Dates: start: 2002
  5. TOPAMAX [Suspect]
     Active Substance: TOPIRAMATE
     Indication: PARTIAL SEIZURES
     Route: 048
     Dates: start: 2002, end: 2011

REACTIONS (2)
  - Drug dose omission [Unknown]
  - Chest pain [Recovered/Resolved]
